FAERS Safety Report 9314292 (Version 1)
Quarter: 2013Q2

REPORT INFORMATION
  Report Type: Spontaneous
  Country: US (occurrence: None)
  Receive Date: 20130524
  Receipt Date: 20130524
  Transmission Date: 20140414
  Serious: Yes (Hospitalization)
  Sender: FDA-Public Use
  Company Number: None

PATIENT
  Age: 39 Year
  Sex: Female

DRUGS (2)
  1. RIBAPAK [Suspect]
     Indication: CHRONIC HEPATITIS
     Dosage: 600MG  TWICE DAILY BY MOUTH
     Route: 048
     Dates: start: 20130322, end: 20130514
  2. RIBAPAK [Suspect]
     Indication: COMA HEPATIC
     Dosage: 600MG  TWICE DAILY BY MOUTH
     Route: 048
     Dates: start: 20130322, end: 20130514

REACTIONS (2)
  - Malaise [None]
  - Transfusion [None]
